FAERS Safety Report 5409917-2 (Version None)
Quarter: 2007Q3

REPORT INFORMATION
  Report Type: 
  Country: None (occurrence: None)
  Receive Date: 20070807
  Receipt Date: 20070730
  Transmission Date: 20080115
  Serious: Yes (Hospitalization)
  Sender: FDA-Public Use
  Company Number: 2007-162024-NL

PATIENT
  Age: 36 Year
  Sex: Female

DRUGS (4)
  1. FOLLITROPIN BETA [Suspect]
     Indication: OVULATION INDUCTION
     Dosage: 200 IU
  2. ESTRADIOL [Suspect]
     Dosage: 8 MG
  3. BUSERELIN [Concomitant]
  4. LUTEINISING HORMONE (HUMAN) [Concomitant]

REACTIONS (4)
  - CEREBELLAR SYNDROME [None]
  - LATERAL MEDULLARY SYNDROME [None]
  - NYSTAGMUS [None]
  - VERTIGO [None]
